FAERS Safety Report 5048300-9 (Version None)
Quarter: 2006Q2

REPORT INFORMATION
  Report Type: 
  Country: None (occurrence: None)
  Receive Date: 20060601
  Receipt Date: 20060217
  Transmission Date: 20061013
  Serious: No
  Sender: FDA-Public Use
  Company Number: 2006PV008905

PATIENT
  Age: 68 Year
  Sex: Female
  Weight: 71.6683 kg

DRUGS (5)
  1. BYETTA [Suspect]
     Indication: DIABETES MELLITUS NON-INSULIN-DEPENDENT
     Dosage: 5 MCG;BID;SC
     Route: 058
     Dates: start: 20060201, end: 20060221
  2. AMARYL [Concomitant]
  3. METFORMIN [Concomitant]
  4. GLUCOPHAGE [Concomitant]
  5. AMARYL [Concomitant]

REACTIONS (2)
  - INJECTION SITE RASH [None]
  - INJECTION SITE URTICARIA [None]
